FAERS Safety Report 6774907-4 (Version None)
Quarter: 2010Q2

REPORT INFORMATION
  Report Type: 
  Country: None (occurrence: None)
  Receive Date: 20100617
  Receipt Date: 20100615
  Transmission Date: 20101027
  Serious: Yes (Hospitalization)
  Sender: FDA-Public Use
  Company Number: US-GILEAD-2010-0029150

PATIENT
  Sex: Male
  Weight: 94.886 kg

DRUGS (12)
  1. LETAIRIS [Suspect]
     Indication: PULMONARY ARTERIAL HYPERTENSION
     Route: 048
     Dates: start: 20080215
  2. SPIRONOLACTONE [Concomitant]
  3. MINOCYCLINE HCL [Concomitant]
  4. COZAAR [Concomitant]
  5. CARVEDILOL [Concomitant]
  6. DIGOXIN [Concomitant]
  7. SIMVASTATIN [Concomitant]
  8. NOVOLOG [Concomitant]
  9. AMITRIPTYLINE [Concomitant]
  10. ALLOPURINOL [Concomitant]
  11. TYLENOL [Concomitant]
  12. IRON [Concomitant]

REACTIONS (1)
  - SKIN ULCER [None]
